FAERS Safety Report 20480938 (Version 1)
Quarter: 2022Q1

REPORT INFORMATION
  Report Type: Spontaneous
  Country: CA (occurrence: CA)
  Receive Date: 20220216
  Receipt Date: 20220216
  Transmission Date: 20220423
  Serious: Yes (Hospitalization)
  Sender: FDA-Public Use
  Company Number: CA-OTSUKA-2022_005509

PATIENT
  Age: 31 Year
  Sex: Male

DRUGS (10)
  1. ARIPIPRAZOLE [Suspect]
     Active Substance: ARIPIPRAZOLE
     Indication: Schizoaffective disorder depressive type
     Dosage: 5 MG, QD
     Route: 065
  2. ARIPIPRAZOLE [Suspect]
     Active Substance: ARIPIPRAZOLE
     Indication: Catatonia
  3. INVEGA SUSTENNA [Suspect]
     Active Substance: PALIPERIDONE PALMITATE
     Indication: Schizoaffective disorder depressive type
     Dosage: 75 MG, 1 EVERY 4 WEEKS
     Route: 030
  4. INVEGA SUSTENNA [Suspect]
     Active Substance: PALIPERIDONE PALMITATE
     Indication: Catatonia
  5. LORAZEPAM [Suspect]
     Active Substance: LORAZEPAM
     Indication: Schizoaffective disorder depressive type
     Dosage: 3 MG, 4 IN 1 DAYS
     Route: 065
  6. LORAZEPAM [Suspect]
     Active Substance: LORAZEPAM
     Indication: Catatonia
  7. SERTRALINE [Suspect]
     Active Substance: SERTRALINE HYDROCHLORIDE
     Indication: Schizoaffective disorder depressive type
     Dosage: 100 MG, QD
     Route: 065
  8. SERTRALINE [Suspect]
     Active Substance: SERTRALINE HYDROCHLORIDE
     Indication: Catatonia
  9. ZOPICLONE [Suspect]
     Active Substance: ZOPICLONE
     Indication: Catatonia
     Dosage: 3.75 MG, QD
     Route: 048
  10. ZOPICLONE [Suspect]
     Active Substance: ZOPICLONE
     Dosage: 4 EVERY 1 DAYS
     Route: 048

REACTIONS (4)
  - Ataxia [Unknown]
  - Sedation complication [Unknown]
  - Therapy non-responder [Unknown]
  - Product use in unapproved indication [Unknown]
